FAERS Safety Report 13775171 (Version 10)
Quarter: 2018Q3

REPORT INFORMATION
  Report Type: Report from Study
  Country: ZA (occurrence: ZA)
  Receive Date: 20170720
  Receipt Date: 20180903
  Transmission Date: 20181010
  Serious: Yes (Death, Hospitalization)
  Sender: FDA-Public Use
  Company Number: PHHY2016ZA079384

PATIENT
  Age: 41 Year
  Sex: Female

DRUGS (5)
  1. FERIPROX [Concomitant]
     Active Substance: DEFERIPRONE
     Indication: IRON OVERLOAD
     Dosage: 7 DF, QD
     Route: 065
     Dates: start: 201804
  2. EXJADE [Suspect]
     Active Substance: DEFERASIROX
     Indication: THALASSAEMIA
     Dosage: 1000 MG, QD
     Route: 065
     Dates: start: 201802, end: 201804
  3. DESFERAL [Suspect]
     Active Substance: DEFEROXAMINE MESYLATE
     Dosage: 5 DF, TIW (5 VIALS 3 TIMES A WEEK VIA SYRINGE PUMP)
     Route: 042
     Dates: start: 201804
  4. DESFERAL [Suspect]
     Active Substance: DEFEROXAMINE MESYLATE
     Indication: THALASSAEMIA
     Dosage: 6 G, Q12H
     Route: 042
     Dates: start: 1980, end: 201802
  5. PLATELETS [Concomitant]
     Active Substance: HUMAN PLATELET, ALLOGENIC
     Indication: PRODUCT USED FOR UNKNOWN INDICATION
     Dosage: UNK, PRN
     Route: 065

REACTIONS (21)
  - Diabetic ketoacidosis [Unknown]
  - Fall [Unknown]
  - Underdose [Unknown]
  - Dehydration [Unknown]
  - Diabetes mellitus [Fatal]
  - Influenza [Recovered/Resolved]
  - Diarrhoea [Recovered/Resolved]
  - Bronchitis [Unknown]
  - Vein disorder [Recovered/Resolved]
  - Asthenia [Not Recovered/Not Resolved]
  - Cardiac disorder [Unknown]
  - Gastroenteritis [Fatal]
  - Diarrhoea [Fatal]
  - Medical device discomfort [Not Recovered/Not Resolved]
  - Off label use [Unknown]
  - Femur fracture [Unknown]
  - Hypothyroidism [Not Recovered/Not Resolved]
  - Skin disorder [Recovered/Resolved]
  - Serum ferritin increased [Not Recovered/Not Resolved]
  - Dysphagia [Unknown]
  - Movement disorder [Unknown]

NARRATIVE: CASE EVENT DATE: 20180228
